FAERS Safety Report 14039291 (Version 1)
Quarter: 2017Q4

REPORT INFORMATION
  Report Type: Spontaneous
  Country: US (occurrence: US)
  Receive Date: 20171004
  Receipt Date: 20171004
  Transmission Date: 20180321
  Serious: No
  Sender: FDA-Public Use
  Company Number: US-BAUSCH-BL-2017-003804

PATIENT
  Age: 44 Year
  Sex: Female
  Weight: 49.94 kg

DRUGS (2)
  1. CAMPHOPHENIQUE OINTMENT [Concomitant]
     Indication: PRODUCT USED FOR UNKNOWN INDICATION
  2. XERESE [Suspect]
     Active Substance: ACYCLOVIR\HYDROCORTISONE
     Indication: ORAL HERPES
     Dosage: WITH A Q-TIP TO THE AFFECTED AREA
     Route: 065
     Dates: start: 20170114, end: 20170119

REACTIONS (1)
  - Drug ineffective [Unknown]
